FAERS Safety Report 4562051-6 (Version None)
Quarter: 2005Q1

REPORT INFORMATION
  Report Type: 
  Country: None (occurrence: None)
  Receive Date: 20050125
  Receipt Date: 20050110
  Transmission Date: 20050727
  Serious: Yes (Death)
  Sender: FDA-Public Use
  Company Number: 2004S1003678

PATIENT
  Age: 48 Year
  Sex: Female

DRUGS (3)
  1. CLOZAPINE [Suspect]
     Indication: SCHIZOPHRENIA
     Dosage: 425 MG BID ORAL
     Route: 048
     Dates: start: 20040601, end: 20041130
  2. VENLAFAXINE HCL [Concomitant]
  3. DONEPEZIL HCL [Concomitant]

REACTIONS (2)
  - ASPHYXIA [None]
  - CHOKING [None]
